FAERS Safety Report 8012362-7 (Version None)
Quarter: 2011Q4

REPORT INFORMATION
  Report Type: 
  Country: None (occurrence: None)
  Receive Date: 20111228
  Receipt Date: 20111221
  Transmission Date: 20120403
  Serious: Yes (Hospitalization)
  Sender: FDA-Public Use
  Company Number: JP-AMGEN-JPNCT2011069035

PATIENT
  Age: 73 Year
  Sex: Male

DRUGS (5)
  1. PANITUMUMAB [Suspect]
     Indication: COLORECTAL CANCER
     Dosage: UNK UNK, Q2WK
     Route: 041
     Dates: start: 20110428
  2. LEVOLEUCOVORIN CALCIUM [Concomitant]
     Indication: COLORECTAL CANCER
     Dosage: UNK
     Route: 041
     Dates: start: 20110428
  3. FLUOROURACIL [Concomitant]
     Indication: COLORECTAL CANCER
     Dosage: UNK
     Route: 040
     Dates: start: 20110428
  4. FLUOROURACIL [Concomitant]
     Dosage: UNK
     Route: 041
     Dates: start: 20110428
  5. OXALIPLATIN [Concomitant]
     Indication: COLORECTAL CANCER
     Route: 041
     Dates: start: 20110428

REACTIONS (1)
  - INTERSTITIAL LUNG DISEASE [None]
